FAERS Safety Report 8213968-2 (Version None)
Quarter: 2012Q1

REPORT INFORMATION
  Report Type: 
  Country: None (occurrence: None)
  Receive Date: 20120316
  Receipt Date: 20120313
  Transmission Date: 20120608
  Serious: No
  Sender: FDA-Public Use
  Company Number: US-PFIZER INC-2012066529

PATIENT
  Sex: Male
  Weight: 90.7 kg

DRUGS (4)
  1. CLONIDINE [Concomitant]
     Indication: CARDIAC DISORDER
     Dosage: UNK
  2. NORVASC [Concomitant]
     Indication: CARDIAC DISORDER
     Dosage: UNK
  3. ACCUPRIL [Concomitant]
     Indication: CARDIAC DISORDER
     Dosage: UNK
  4. PRISTIQ [Suspect]
     Indication: DEPRESSION
     Dosage: 50 MG, 1X/DAY
     Route: 048
     Dates: start: 20120101, end: 20120201

REACTIONS (2)
  - FEELING ABNORMAL [None]
  - DRUG INEFFECTIVE [None]
